FAERS Safety Report 7552919-0 (Version None)
Quarter: 2011Q2

REPORT INFORMATION
  Report Type: 
  Country: None (occurrence: None)
  Receive Date: 20110616
  Receipt Date: 20110408
  Transmission Date: 20111010
  Serious: Yes (Other)
  Sender: FDA-Public Use
  Company Number: US-ASTRAZENECA-2011SE20134

PATIENT
  Sex: Female

DRUGS (1)
  1. FASLODEX [Suspect]
     Indication: BREAST CANCER
     Route: 030

REACTIONS (5)
  - METASTASES TO BONE [None]
  - METASTASES TO SPINE [None]
  - HOT FLUSH [None]
  - METASTATIC PAIN [None]
  - NAUSEA [None]
